FAERS Safety Report 11159487 (Version 2)
Quarter: 2015Q3

REPORT INFORMATION
  Report Type: Spontaneous
  Country: US (occurrence: US)
  Receive Date: 20150603
  Receipt Date: 20150813
  Transmission Date: 20151125
  Serious: Yes (Hospitalization)
  Sender: FDA-Public Use
  Company Number: US-PFIZER INC-2015183297

PATIENT
  Age: 46 Year
  Sex: Male
  Weight: 59 kg

DRUGS (1)
  1. LYRICA [Suspect]
     Active Substance: PREGABALIN
     Indication: HYPOAESTHESIA
     Dosage: 100 MG, UNK
     Dates: start: 2012

REACTIONS (3)
  - Abdominal pain upper [Not Recovered/Not Resolved]
  - Pain in extremity [Not Recovered/Not Resolved]
  - Fluid retention [Unknown]

NARRATIVE: CASE EVENT DATE: 2015
